FAERS Safety Report 8274630-3 (Version None)
Quarter: 2012Q2

REPORT INFORMATION
  Report Type: 
  Country: None (occurrence: None)
  Receive Date: 20120411
  Receipt Date: 20120406
  Transmission Date: 20120825
  Serious: Yes (Disabling)
  Sender: FDA-Public Use
  Company Number: US-GLAXOSMITHKLINE-A0970527A

PATIENT
  Age: 64 Year
  Sex: Male
  Weight: 104.5 kg

DRUGS (4)
  1. NIACIN [Concomitant]
  2. LOVAZA [Suspect]
     Indication: BLOOD TRIGLYCERIDES INCREASED
     Dosage: 2G UNKNOWN
     Route: 048
     Dates: start: 20111201, end: 20120301
  3. CRESTOR [Concomitant]
  4. LISINOPRIL [Suspect]
     Dosage: 20MG TWICE PER DAY

REACTIONS (4)
  - DIARRHOEA [None]
  - COLITIS MICROSCOPIC [None]
  - OEDEMA PERIPHERAL [None]
  - HYPOTENSION [None]
